FAERS Safety Report 9867239 (Version 1)
Quarter: 2014Q1

REPORT INFORMATION
  Report Type: Spontaneous
  Country: US (occurrence: US)
  Receive Date: 20140204
  Receipt Date: 20140204
  Transmission Date: 20141002
  Serious: No
  Sender: FDA-Public Use
  Company Number: US-JNJFOC-20140115126

PATIENT
  Sex: Male

DRUGS (2)
  1. INVEGA SUSTENNA [Suspect]
     Indication: SCHIZOPHRENIA
     Route: 030
     Dates: start: 201401
  2. PRINIVIL [Concomitant]
     Indication: HYPERTENSION
     Route: 048

REACTIONS (2)
  - Hallucination, auditory [Unknown]
  - Delusion [Unknown]
